FAERS Safety Report 25713585 (Version 1)
Quarter: 2025Q3

REPORT INFORMATION
  Report Type: Spontaneous
  Country: US (occurrence: US)
  Receive Date: 20250822
  Receipt Date: 20250822
  Transmission Date: 20251021
  Serious: Yes (Congenital Anomaly, Other)
  Sender: SANOFI AVENTIS
  Company Number: US-SA-2025SA250000

PATIENT
  Sex: Female

DRUGS (1)
  1. CEREZYME [Suspect]
     Active Substance: IMIGLUCERASE
     Indication: Gaucher^s disease
     Dosage: 4400 (UNITS UNKNOWN), QOW
     Route: 064
     Dates: start: 200401

REACTIONS (2)
  - Cardiac septal defect [Not Recovered/Not Resolved]
  - Foetal exposure during pregnancy [Unknown]
